FAERS Safety Report 9772670 (Version 1)
Quarter: 2013Q4

REPORT INFORMATION
  Report Type: Spontaneous
  Country: BR (occurrence: BR)
  Receive Date: 20131219
  Receipt Date: 20131219
  Transmission Date: 20140711
  Serious: Yes (Other)
  Sender: FDA-Public Use
  Company Number: BR-PFIZER INC-2013360401

PATIENT
  Age: 64 Year
  Sex: Female
  Weight: 75 kg

DRUGS (2)
  1. XALATAN [Suspect]
     Indication: GLAUCOMA
     Dosage: 1 DROP IN LEFT EYE (1.5 UG), 1X/DAY, CONTINUOUS USE
     Route: 047
     Dates: start: 20091213
  2. RIVOTRIL [Concomitant]
     Indication: ANXIOLYTIC THERAPY
     Dosage: 1 DF, AT NIGHT, CONTINUOUS

REACTIONS (3)
  - Cataract [Unknown]
  - Visual impairment [Unknown]
  - Intraocular pressure increased [Unknown]
